FAERS Safety Report 7604582-8 (Version None)
Quarter: 2011Q3

REPORT INFORMATION
  Report Type: 
  Country: None (occurrence: None)
  Receive Date: 20110712
  Receipt Date: 20110701
  Transmission Date: 20111222
  Serious: Yes (Hospitalization, Other)
  Sender: FDA-Public Use
  Company Number: DE-PFIZER INC-2011148798

PATIENT
  Age: 49 Year
  Sex: Female
  Weight: 81 kg

DRUGS (2)
  1. IBUPROFEN [Suspect]
     Indication: PRODUCT USED FOR UNKNOWN INDICATION
     Dosage: 400 MG, 1X/DAY, 1-6X WEEKLY
     Route: 048
     Dates: start: 20110104, end: 20110318
  2. IBUPROFEN [Suspect]
     Dosage: 8X400 MG DAILY AS NEEDED
     Route: 048
     Dates: start: 20110314, end: 20110318

REACTIONS (1)
  - PANCREATITIS ACUTE [None]
